FAERS Safety Report 24526566 (Version 1)
Quarter: 2024Q4

REPORT INFORMATION
  Report Type: Spontaneous
  Country: EG (occurrence: EG)
  Receive Date: 20241021
  Receipt Date: 20241021
  Transmission Date: 20250115
  Serious: No
  Sender: ROCHE
  Company Number: EG-ROCHE-3428481

PATIENT
  Sex: Female

DRUGS (1)
  1. ZELBORAF [Suspect]
     Active Substance: VEMURAFENIB
     Indication: Malignant melanoma
     Route: 065

REACTIONS (1)
  - Rash [Unknown]

NARRATIVE: CASE EVENT DATE: 20230906
